FAERS Safety Report 23229553 (Version 1)
Quarter: 2023Q4

REPORT INFORMATION
  Report Type: Spontaneous
  Country: DE (occurrence: DE)
  Receive Date: 20231127
  Receipt Date: 20231127
  Transmission Date: 20240110
  Serious: Yes (Other)
  Sender: FDA-Public Use
  Company Number: None

PATIENT
  Age: 71 Year
  Sex: Female
  Weight: 71 kg

DRUGS (8)
  1. JARDIANCE [Suspect]
     Active Substance: EMPAGLIFLOZIN
     Indication: Product used for unknown indication
     Route: 048
     Dates: start: 20230614, end: 20231011
  2. TORSEMIDE [Suspect]
     Active Substance: TORSEMIDE
     Indication: Polyuria
     Route: 048
     Dates: start: 20230829
  3. TORSEMIDE [Suspect]
     Active Substance: TORSEMIDE
     Route: 048
     Dates: start: 20230614, end: 20230620
  4. TORSEMIDE [Suspect]
     Active Substance: TORSEMIDE
     Route: 048
     Dates: start: 20230901, end: 20230928
  5. SPIRONOLACTONE [Suspect]
     Active Substance: SPIRONOLACTONE
     Indication: Product used for unknown indication
     Route: 048
     Dates: start: 20230614, end: 20231117
  6. Dekristol 20.000 [Concomitant]
     Indication: Product used for unknown indication
     Dosage: FOR YEARS
  7. concor 2,5 [Concomitant]
     Indication: Product used for unknown indication
     Dosage: FOR YEARS
     Route: 048
  8. Lixiana 60 [Concomitant]
     Indication: Product used for unknown indication
     Dosage: FOR YEARS
     Route: 048

REACTIONS (2)
  - Sudden hearing loss [Not Recovered/Not Resolved]
  - Tinnitus [Recovered/Resolved with Sequelae]

NARRATIVE: CASE EVENT DATE: 20230901
